FAERS Safety Report 18052988 (Version 2)
Quarter: 2020Q3

REPORT INFORMATION
  Report Type: Report from Study
  Country: SA (occurrence: SA)
  Receive Date: 20200721
  Receipt Date: 20200928
  Transmission Date: 20201103
  Serious: Yes (Hospitalization)
  Sender: FDA-Public Use
  Company Number: SA-CELLTRION INC.-2019SA026205

PATIENT

DRUGS (23)
  1. REMSIMA [Suspect]
     Active Substance: INFLIXIMAB
     Dosage: 322.5 MG (5MG/KG)
     Route: 041
     Dates: start: 20190213
  2. METRONIDAZOLE. [Suspect]
     Active Substance: METRONIDAZOLE
     Indication: INFECTION PROPHYLAXIS
     Dosage: 500 MG, STAT
     Route: 042
     Dates: start: 20200107, end: 20200107
  3. HYDROCORTISONE SODIUM SUCCINATE [Concomitant]
     Active Substance: HYDROCORTISONE SODIUM SUCCINATE
     Dosage: 100 MG, STAT
     Route: 042
     Dates: start: 20190519, end: 20190519
  4. PARACETAMOL [Concomitant]
     Active Substance: ACETAMINOPHEN
     Indication: PAIN
     Dosage: 1000 MG, STAT
     Route: 042
     Dates: start: 20191126, end: 20191126
  5. CIPROFLOXACIN LACTATE [Concomitant]
     Active Substance: CIPROFLOXACIN LACTATE
     Indication: INFECTION PROPHYLAXIS
     Dosage: 200 MG, STAT
     Route: 042
     Dates: start: 20200107, end: 20200107
  6. HYDROCORTISONE SODIUM SUCCINATE [Concomitant]
     Active Substance: HYDROCORTISONE SODIUM SUCCINATE
     Dosage: 100 MG, STAT
     Route: 042
     Dates: start: 20190213, end: 20190213
  7. REMSIMA [Suspect]
     Active Substance: INFLIXIMAB
     Dosage: 308.5 MG (5MG/KG)
     Route: 041
     Dates: start: 20200101, end: 20200101
  8. PREDNISONE. [Concomitant]
     Active Substance: PREDNISONE
     Indication: ANTIINFLAMMATORY THERAPY
     Dosage: 40 MG,1 D
     Route: 048
     Dates: start: 20191125, end: 20191227
  9. REMSIMA [Suspect]
     Active Substance: INFLIXIMAB
     Dosage: 322.5 MG (5MG/KG)
     Route: 041
     Dates: start: 20190519
  10. HYDROCORTISONE SODIUM SUCCINATE [Concomitant]
     Active Substance: HYDROCORTISONE SODIUM SUCCINATE
     Dosage: 100 MG, STAT
     Route: 042
     Dates: start: 20200101, end: 20200101
  11. PARACETAMOL [Concomitant]
     Active Substance: ACETAMINOPHEN
     Dosage: 1000 MG, STAT
     Route: 042
     Dates: start: 20200107, end: 20200107
  12. OMEPRAZOLE. [Concomitant]
     Active Substance: OMEPRAZOLE
     Indication: PROPHYLAXIS
     Dosage: 40 MG,1 IN 1 D
     Route: 042
     Dates: start: 20200107, end: 20200109
  13. OMEPRAZOLE. [Concomitant]
     Active Substance: OMEPRAZOLE
     Indication: PAIN PROPHYLAXIS
  14. HYDROCORTISONE SODIUM SUCCINATE [Concomitant]
     Active Substance: HYDROCORTISONE SODIUM SUCCINATE
     Dosage: 100 MG, STAT
     Route: 042
     Dates: start: 20190115, end: 20190115
  15. METHYLPREDNISOLONE SODIUM SUCCINATE. [Concomitant]
     Active Substance: METHYLPREDNISOLONE SODIUM SUCCINATE
     Dosage: UNK
     Route: 030
     Dates: start: 20191226
  16. REMSIMA [Suspect]
     Active Substance: INFLIXIMAB
     Indication: CROHN^S DISEASE
     Dosage: 296.5 MG (5MG/KG)
     Route: 041
     Dates: start: 20181204
  17. REMSIMA [Suspect]
     Active Substance: INFLIXIMAB
     Dosage: 322.5 MG (5MG/KG)
     Route: 041
     Dates: start: 20190115
  18. HYDROCORTISONE SODIUM SUCCINATE [Concomitant]
     Active Substance: HYDROCORTISONE SODIUM SUCCINATE
     Dosage: 100 MG, STAT
     Route: 042
     Dates: start: 20190911, end: 20190911
  19. PREDNISOLONE. [Concomitant]
     Active Substance: PREDNISOLONE
     Indication: ANTIINFLAMMATORY THERAPY
     Dosage: 200 MG,1 IN 1 D
     Route: 048
     Dates: start: 20191125, end: 20191227
  20. REMSIMA [Suspect]
     Active Substance: INFLIXIMAB
     Indication: INFLAMMATORY BOWEL DISEASE
     Dosage: 300 MG (5MG/KG) VIA INTRAVENOUS INFUSION EVERY 0,2,6,8 WEEKS, IN 250 ML NORMAL SALINE OVER THREE HOU
     Route: 041
     Dates: start: 20181110
  21. REMSIMA [Suspect]
     Active Substance: INFLIXIMAB
     Dosage: 322.5 MG (5MG/KG)
     Route: 041
     Dates: start: 20190911
  22. HYDROCORTISONE SODIUM SUCCINATE [Concomitant]
     Active Substance: HYDROCORTISONE SODIUM SUCCINATE
     Indication: PREMEDICATION
     Dosage: 100 MG, STAT
     Route: 042
     Dates: start: 20181204, end: 20181204
  23. METHYLPREDNISOLONE SODIUM SUCCINATE. [Concomitant]
     Active Substance: METHYLPREDNISOLONE SODIUM SUCCINATE
     Indication: ANTIINFLAMMATORY THERAPY
     Dosage: 60 MG STAT
     Route: 030
     Dates: start: 20191126, end: 20191126

REACTIONS (8)
  - Therapy non-responder [Unknown]
  - Overdose [Unknown]
  - Appendicitis [Recovered/Resolved]
  - Lymphadenopathy [Recovered/Resolved]
  - Colitis [Recovered/Resolved]
  - Terminal ileitis [Recovered/Resolved]
  - Abdominal tenderness [Recovered/Resolved]
  - Product use issue [Unknown]

NARRATIVE: CASE EVENT DATE: 20181204
